FAERS Safety Report 8607646-5 (Version None)
Quarter: 2012Q3

REPORT INFORMATION
  Report Type: 
  Country: None (occurrence: None)
  Receive Date: 20120809
  Receipt Date: 20120809
  Transmission Date: 20120928
  Serious: Yes (Life-Threatening, Hospitalization)
  Sender: FDA-Public Use
  Company Number: None

PATIENT
  Age: 58 Year
  Sex: Male
  Weight: 95.5 kg

DRUGS (2)
  1. PIPERACILLIN AND TAZOBACTAM [Suspect]
     Dosage: 3.375 GM QID IV
     Route: 042
     Dates: start: 20110830, end: 20110907
  2. VANCOMYCIN [Suspect]
     Dosage: 1500 MG BID IV
     Route: 042
     Dates: start: 20110830, end: 20110904

REACTIONS (1)
  - RENAL FAILURE ACUTE [None]
